FAERS Safety Report 18131265 (Version 13)
Quarter: 2022Q1

REPORT INFORMATION
  Report Type: Spontaneous
  Country: CA (occurrence: CA)
  Receive Date: 20200810
  Receipt Date: 20220208
  Transmission Date: 20220423
  Serious: Yes (Other)
  Sender: FDA-Public Use
  Company Number: CA-BAUSCH-BL-2020-022614

PATIENT
  Age: 41 Year
  Sex: Male

DRUGS (4)
  1. METRONIDAZOLE [Suspect]
     Active Substance: METRONIDAZOLE
     Indication: Anal ulcer
     Route: 065
  2. USTEKINUMAB [Suspect]
     Active Substance: USTEKINUMAB
     Indication: Crohn^s disease
     Route: 065
  3. VITAMINS [Concomitant]
     Active Substance: VITAMINS
     Indication: Product used for unknown indication
  4. CIPROFLOXACIN [Concomitant]
     Active Substance: CIPROFLOXACIN
     Indication: Anal ulcer

REACTIONS (5)
  - Parkinsonism [Recovered/Resolved]
  - Central nervous system lesion [Not Recovered/Not Resolved]
  - Dysdiadochokinesis [Recovered/Resolved]
  - Toxic encephalopathy [Recovered/Resolved with Sequelae]
  - Intentional product use issue [Unknown]
